FAERS Safety Report 5205760-8 (Version None)
Quarter: 2007Q1

REPORT INFORMATION
  Report Type: 
  Country: None (occurrence: None)
  Receive Date: 20070105
  Receipt Date: 20070105
  Transmission Date: 20070707
  Serious: Yes (Hospitalization)
  Sender: FDA-Public Use
  Company Number: None

PATIENT
  Age: 92 Year
  Sex: Male
  Weight: 99.8 kg

DRUGS (3)
  1. LISINOPRIL [Suspect]
     Indication: DIABETES MELLITUS
  2. LISINOPRIL [Suspect]
     Indication: HYPERTENSION
  3. TRIAMTERENE [Suspect]
     Indication: HYPERTENSION

REACTIONS (1)
  - RENAL FAILURE CHRONIC [None]
